FAERS Safety Report 12403106 (Version 2)
Quarter: 2016Q3

REPORT INFORMATION
  Report Type: Spontaneous
  Country: DK (occurrence: DK)
  Receive Date: 20160525
  Receipt Date: 20160829
  Transmission Date: 20161109
  Serious: Yes (Death, Hospitalization)
  Sender: FDA-Public Use
  Company Number: DK-ROCHE-1760214

PATIENT
  Age: 69 Year
  Sex: Male

DRUGS (16)
  1. DICLON [Concomitant]
     Active Substance: DICLOFENAC SODIUM
     Indication: PRODUCT USED FOR UNKNOWN INDICATION
     Route: 065
  2. GLIMEPIRIDE. [Concomitant]
     Active Substance: GLIMEPIRIDE
     Indication: PRODUCT USED FOR UNKNOWN INDICATION
     Route: 065
  3. MABTHERA [Suspect]
     Active Substance: RITUXIMAB
     Indication: LYMPHOMA
     Dosage: THE PATIENT ALSO RECEIVED TREATMENT ON 02/NOV/2012, 23/NOV/2012, 14/DEC/2012 AND ON 04/JAN/2013
     Route: 042
     Dates: start: 20121012, end: 20130429
  4. ONCOVIN [Suspect]
     Active Substance: VINCRISTINE SULFATE
     Indication: LYMPHOMA
     Dosage: FORM STRENGTH: 1 MG/ML?THE PATIENT ALSO RECEIVED TREATMENT ON 02/NOV/2012, 23/NOV/2012, 14/DEC/2012
     Route: 042
     Dates: start: 20121012, end: 20130125
  5. VICTOZA [Concomitant]
     Active Substance: LIRAGLUTIDE
     Indication: PRODUCT USED FOR UNKNOWN INDICATION
     Route: 065
  6. PINEX (DENMARK) [Concomitant]
     Indication: PRODUCT USED FOR UNKNOWN INDICATION
     Route: 065
  7. HJERTEMAGNYL [Concomitant]
     Active Substance: ASPIRIN\MAGNESIUM OXIDE
     Indication: PRODUCT USED FOR UNKNOWN INDICATION
     Route: 065
  8. ACYCLOVIR. [Concomitant]
     Active Substance: ACYCLOVIR
     Indication: PRODUCT USED FOR UNKNOWN INDICATION
     Dosage: UNKNOWN DOSE
     Route: 065
  9. CODEINE [Concomitant]
     Active Substance: CODEINE
     Indication: PRODUCT USED FOR UNKNOWN INDICATION
     Route: 065
  10. SIMVASTATIN. [Concomitant]
     Active Substance: SIMVASTATIN
     Indication: PRODUCT USED FOR UNKNOWN INDICATION
     Route: 065
  11. ADRIAMYCIN [Suspect]
     Active Substance: DOXORUBICIN HYDROCHLORIDE
     Indication: LYMPHOMA
     Dosage: THE PATIENT ALSO RECEIVED TREATMENT ON: 02/NOV/2012, 23/NOV/2012, 14/DEC/2012 AND ON 04/JAN/2013
     Route: 042
     Dates: start: 20121012, end: 20130125
  12. SENDOXAN [Suspect]
     Active Substance: CYCLOPHOSPHAMIDE
     Indication: LYMPHOMA
     Dosage: THE PATIENT ALSO RECEIVED TREATMENT ON 02/NOV/2012, 23/NOV/2012, 14/DEC/2012 AND ON 04/JAN/2013
     Route: 042
     Dates: start: 20121012, end: 20130125
  13. IBUPROFEN. [Concomitant]
     Active Substance: IBUPROFEN
     Indication: PRODUCT USED FOR UNKNOWN INDICATION
     Route: 065
  14. METOPROLOL SUCCINATE. [Concomitant]
     Active Substance: METOPROLOL SUCCINATE
     Indication: PRODUCT USED FOR UNKNOWN INDICATION
     Route: 065
  15. PREDNISONE. [Suspect]
     Active Substance: PREDNISONE
     Indication: LYMPHOMA
     Dosage: 02/NOV/2012, 23/NOV/2012, 14/DEC/2012 AND ON 04/JAN/2013
     Route: 065
     Dates: start: 20121012, end: 20130125
  16. MAREVAN [Concomitant]
     Active Substance: WARFARIN SODIUM
     Indication: PRODUCT USED FOR UNKNOWN INDICATION
     Dosage: 10 PCS PER 1 WEEK
     Route: 065

REACTIONS (14)
  - Abdominal cavity drainage [Unknown]
  - Cardiomegaly [Fatal]
  - Feeling of body temperature change [Recovered/Resolved]
  - Pleural effusion [Unknown]
  - Oedema peripheral [Not Recovered/Not Resolved]
  - Ascites [Unknown]
  - Cardiac pacemaker insertion [Not Recovered/Not Resolved]
  - Dyspnoea [Not Recovered/Not Resolved]
  - Asthenia [Not Recovered/Not Resolved]
  - Fatigue [Not Recovered/Not Resolved]
  - Cardiac failure [Fatal]
  - Pneumonia [Recovered/Resolved]
  - Pyrexia [Recovered/Resolved]
  - Ejection fraction decreased [Fatal]

NARRATIVE: CASE EVENT DATE: 20130203
